FAERS Safety Report 7644801-5 (Version None)
Quarter: 2011Q3

REPORT INFORMATION
  Report Type: 
  Country: None (occurrence: None)
  Receive Date: 20110725
  Receipt Date: 20110708
  Transmission Date: 20111222
  Serious: Yes (Other)
  Sender: FDA-Public Use
  Company Number: 2011MA008792

PATIENT
  Age: 62 Year
  Sex: Male

DRUGS (8)
  1. FERROUS SULFATE TAB [Concomitant]
  2. HUMALOG [Concomitant]
  3. FLUOROURACIL [Suspect]
     Indication: COLORECTAL CANCER METASTATIC
     Dosage: 750 MG;IV
     Route: 042
     Dates: start: 20110426, end: 20110428
  4. IRINOTECAN HYDROCHLORIDE [Suspect]
     Indication: COLORECTAL CANCER METASTATIC
     Dosage: 330 MG;IV
     Route: 042
     Dates: start: 20110426, end: 20110426
  5. LISINOPRIL [Concomitant]
  6. LANSOPRAZOLE [Concomitant]
  7. INSULIN MIXTARD [Concomitant]
  8. SIMVASTATIN [Concomitant]

REACTIONS (2)
  - CONSTIPATION [None]
  - URINARY RETENTION [None]
